FAERS Safety Report 13064668 (Version 1)
Quarter: 2016Q4

REPORT INFORMATION
  Report Type: Spontaneous
  Country: DK (occurrence: DK)
  Receive Date: 20161227
  Receipt Date: 20161227
  Transmission Date: 20170207
  Serious: Yes (Hospitalization)
  Sender: FDA-Public Use
  Company Number: DK-TEVA-721487ACC

PATIENT
  Age: 61 Year
  Sex: Male

DRUGS (4)
  1. ANTABUS [Concomitant]
     Active Substance: DISULFIRAM
     Indication: ALCOHOL ABUSE
     Route: 048
     Dates: start: 20140116
  2. GABAPENTIN. [Concomitant]
     Active Substance: GABAPENTIN
     Indication: SENSORY DISTURBANCE
     Route: 048
     Dates: start: 201601
  3. CLOPIDOGREL [Concomitant]
     Active Substance: CLOPIDOGREL BISULFATE
     Indication: CEREBROVASCULAR ACCIDENT
     Route: 048
     Dates: start: 201501
  4. SIMVASTATIN ^ACTAVIS^ [Suspect]
     Active Substance: SIMVASTATIN
     Indication: HYPERCHOLESTEROLAEMIA
     Dosage: 40 MILLIGRAM DAILY;
     Route: 048
     Dates: start: 201501

REACTIONS (6)
  - Abdominal pain [Unknown]
  - Constipation [Unknown]
  - Cerebral thrombosis [Unknown]
  - Memory impairment [Unknown]
  - Speech disorder [Unknown]
  - Headache [Unknown]

NARRATIVE: CASE EVENT DATE: 20160401
